FAERS Safety Report 10541446 (Version 2)
Quarter: 2015Q1

REPORT INFORMATION
  Report Type: Report from Study
  Country: TR (occurrence: TR)
  Receive Date: 20141024
  Receipt Date: 20150212
  Transmission Date: 20150720
  Serious: Yes (Other)
  Sender: FDA-Public Use
  Company Number: TR-CELGENE-TUR-2014104056

PATIENT
  Sex: Female

DRUGS (3)
  1. LENALIDOMIDE [Suspect]
     Active Substance: LENALIDOMIDE
  2. REVLIMID [Suspect]
     Active Substance: LENALIDOMIDE
     Indication: MYELOFIBROSIS
     Route: 048
  3. REVLIMID [Suspect]
     Active Substance: LENALIDOMIDE
     Indication: OFF LABEL USE

REACTIONS (1)
  - Malignant neoplasm of unknown primary site [Unknown]
